FAERS Safety Report 16279127 (Version 9)
Quarter: 2020Q2

REPORT INFORMATION
  Report Type: Report from Study
  Country: CA (occurrence: CA)
  Receive Date: 20190506
  Receipt Date: 20200525
  Transmission Date: 20200713
  Serious: Yes (Other)
  Sender: FDA-Public Use
  Company Number: CA-BIOGEN-2019BI00718578

PATIENT
  Age: 71 Year
  Sex: Female

DRUGS (4)
  1. FAMPYRA [Suspect]
     Active Substance: DALFAMPRIDINE
     Indication: GAIT DISTURBANCE
     Route: 048
     Dates: start: 20190326
  2. FAMPYRA [Suspect]
     Active Substance: DALFAMPRIDINE
     Route: 048
  3. ATIVAN [Concomitant]
     Active Substance: LORAZEPAM
     Indication: PRODUCT USED FOR UNKNOWN INDICATION
     Route: 065
  4. IMOVAN [Suspect]
     Active Substance: ZOPICLONE
     Indication: INSOMNIA
     Route: 065

REACTIONS (19)
  - Fatigue [Unknown]
  - Breast cancer in situ [Recovered/Resolved]
  - Hypoglycaemia [Unknown]
  - Central nervous system lesion [Unknown]
  - Malaise [Unknown]
  - Type 2 diabetes mellitus [Unknown]
  - Anger [Unknown]
  - Eating disorder [Unknown]
  - Irritability [Unknown]
  - Insomnia [Unknown]
  - Humidity intolerance [Unknown]
  - Intentional product misuse [Unknown]
  - Temperature intolerance [Unknown]
  - Pain in extremity [Unknown]
  - Feeling cold [Unknown]
  - Neurogenic shock [Unknown]
  - Gait disturbance [Unknown]
  - Asthenia [Unknown]
  - Anxiety [Unknown]

NARRATIVE: CASE EVENT DATE: 201906
